FAERS Safety Report 9342422 (Version 9)
Quarter: 2017Q1

REPORT INFORMATION
  Report Type: Spontaneous
  Country: US (occurrence: US)
  Receive Date: 20130611
  Receipt Date: 20170206
  Transmission Date: 20170429
  Serious: No
  Sender: FDA-Public Use
  Company Number: US-009507513-1306USA004330

PATIENT
  Sex: Male
  Weight: 135.6 kg

DRUGS (1)
  1. PROPECIA [Suspect]
     Active Substance: FINASTERIDE
     Indication: ALOPECIA
     Dosage: 1 MG, QD
     Route: 048
     Dates: start: 20020416, end: 20120103

REACTIONS (20)
  - Cognitive disorder [Not Recovered/Not Resolved]
  - Anxiety [Unknown]
  - Blood testosterone decreased [Unknown]
  - Anxiety [Not Recovered/Not Resolved]
  - Dizziness [Unknown]
  - Asthenia [Unknown]
  - Pyrexia [Unknown]
  - Hypogonadism [Unknown]
  - Back pain [Not Recovered/Not Resolved]
  - Spinal column injury [Unknown]
  - Drug ineffective [Unknown]
  - Ankle fracture [Unknown]
  - Feeling abnormal [Unknown]
  - Haematoma [Unknown]
  - Depression [Not Recovered/Not Resolved]
  - Erectile dysfunction [Unknown]
  - Headache [Unknown]
  - Sexual dysfunction [Not Recovered/Not Resolved]
  - Scoliosis [Unknown]
  - Road traffic accident [Unknown]

NARRATIVE: CASE EVENT DATE: 200307
